FAERS Safety Report 6467328-5 (Version None)
Quarter: 2009Q4

REPORT INFORMATION
  Report Type: 
  Country: None (occurrence: None)
  Receive Date: 20091202
  Receipt Date: 20091123
  Transmission Date: 20100525
  Serious: Yes (Hospitalization, Other)
  Sender: FDA-Public Use
  Company Number: US-ELI_LILLY_AND_COMPANY-US200911005899

PATIENT
  Sex: Female
  Weight: 117.91 kg

DRUGS (20)
  1. BYETTA [Suspect]
     Indication: TYPE 2 DIABETES MELLITUS
     Dosage: 5 UG, 2/D
     Route: 058
     Dates: start: 20050101, end: 20060101
  2. BYETTA [Suspect]
     Dosage: 10 UG, 2/D
     Route: 058
     Dates: start: 20060101, end: 20060101
  3. BYETTA [Suspect]
     Dosage: 5 UG, 2/D
     Route: 058
     Dates: start: 20060101
  4. GLIMEPIRIDE [Concomitant]
     Indication: TYPE 2 DIABETES MELLITUS
     Dosage: 2 MG, 2/D
  5. VERAPAMIL [Concomitant]
     Indication: HYPERTENSION
     Dosage: 240 MG, 2/D
  6. PROPRANOLOL [Concomitant]
     Indication: TREMOR
     Dosage: 160 MG, DAILY (1/D)
  7. AVAPRO [Concomitant]
     Indication: HYPERTENSION
     Dosage: 300 MG, DAILY (1/D)
  8. LEVETIRACETAM [Concomitant]
     Indication: TREMOR
     Dosage: 500 MG, 2/D
  9. PRIMIDONE [Concomitant]
     Indication: TREMOR
     Dosage: 50 MG, 3/D
  10. GABAPENTIN [Concomitant]
     Indication: TREMOR
     Dosage: 200 MG, 3/D
  11. LEVOTHYROXINE SODIUM [Concomitant]
     Indication: THYROID DISORDER
     Dosage: 175 UG, DAILY (1/D)
  12. PLAVIX [Concomitant]
     Dosage: 75 MG, DAILY (1/D)
  13. ASPIRIN [Concomitant]
     Dosage: 81 MG, DAILY (1/D)
  14. ASPIRIN [Concomitant]
     Dosage: 325 MG, OTHER
  15. IRON [Concomitant]
     Dosage: 47.5 MG, DAILY (1/D)
  16. COLACE [Concomitant]
     Indication: CONSTIPATION
     Dosage: 100 MG, DAILY (1/D)
  17. VITAMIN B-12 [Concomitant]
     Dosage: UNK, DAILY (1/D)
  18. ASCORBIC ACID [Concomitant]
     Dosage: 500 MG, UNK
  19. OXYCONTIN [Concomitant]
     Indication: PAIN
     Dosage: 30 MG, AS NEEDED
  20. OXYCODONE HCL AND ACETAMINOPHEN [Concomitant]
     Indication: PAIN
     Dosage: UNK, AS NEEDED

REACTIONS (16)
  - ANGIOPATHY [None]
  - ARTHROPATHY [None]
  - BLOOD DISORDER [None]
  - BLOOD GLUCOSE DECREASED [None]
  - BLOOD GLUCOSE INCREASED [None]
  - FALL [None]
  - INAPPROPRIATE SCHEDULE OF DRUG ADMINISTRATION [None]
  - KNEE ARTHROPLASTY [None]
  - LIMB DISCOMFORT [None]
  - MASS [None]
  - NAUSEA [None]
  - NEUROPATHY PERIPHERAL [None]
  - RENAL DISORDER [None]
  - RENAL FAILURE [None]
  - STRESS [None]
  - VARICOSE VEIN OPERATION [None]
